FAERS Safety Report 17291648 (Version 1)
Quarter: 2020Q1

REPORT INFORMATION
  Report Type: Spontaneous
  Country: FR (occurrence: FR)
  Receive Date: 20200121
  Receipt Date: 20200121
  Transmission Date: 20200409
  Serious: Yes (Disabling)
  Sender: FDA-Public Use
  Company Number: FR-BAYER-2020-003109

PATIENT
  Age: 55 Year
  Sex: Male
  Weight: 92 kg

DRUGS (1)
  1. CIFLOX 500 MG [Suspect]
     Active Substance: CIPROFLOXACIN
     Indication: LUNG DISORDER
     Dosage: 2 DF, QD
     Route: 048
     Dates: start: 20191127, end: 20191202

REACTIONS (1)
  - Tendon disorder [Not Recovered/Not Resolved]

NARRATIVE: CASE EVENT DATE: 20191202
